FAERS Safety Report 7701167-X (Version None)
Quarter: 2011Q3

REPORT INFORMATION
  Report Type: 
  Country: None (occurrence: None)
  Receive Date: 20110819
  Receipt Date: 20110819
  Transmission Date: 20111222
  Serious: Yes (Other)
  Sender: FDA-Public Use
  Company Number: None

PATIENT
  Sex: Male
  Weight: 90.7194 kg

DRUGS (1)
  1. ARANESP [Suspect]
     Dosage: 200MCG Q2W SQ
     Route: 058
     Dates: start: 20110729, end: 20110818

REACTIONS (2)
  - POLLAKIURIA [None]
  - HALLUCINATION, VISUAL [None]
